FAERS Safety Report 6165529-7 (Version None)
Quarter: 2009Q2

REPORT INFORMATION
  Report Type: 
  Country: None (occurrence: None)
  Receive Date: 20090423
  Receipt Date: 20080312
  Transmission Date: 20091009
  Serious: No
  Sender: FDA-Public Use
  Company Number: US-BRISTOL-MYERS SQUIBB COMPANY-14113260

PATIENT

DRUGS (1)
  1. PARAPLATIN LYO [Suspect]

REACTIONS (1)
  - PSORIASIS [None]
